FAERS Safety Report 15195807 (Version 3)
Quarter: 2018Q3

REPORT INFORMATION
  Report Type: Spontaneous
  Country: JP (occurrence: JP)
  Receive Date: 20180725
  Receipt Date: 20180830
  Transmission Date: 20181010
  Serious: Yes (Other)
  Sender: FDA-Public Use
  Company Number: JP-ASTRAZENECA-2018SE93953

PATIENT
  Age: 91 Year
  Sex: Female
  Weight: 51 kg

DRUGS (11)
  1. MICARDIS [Concomitant]
     Active Substance: TELMISARTAN
     Indication: HYPERTENSION
     Route: 048
     Dates: start: 20170111
  2. NEOPHYLLIN [Concomitant]
     Active Substance: AMINOPHYLLINE
     Indication: ASTHMA
     Route: 041
     Dates: start: 20180718, end: 20180718
  3. SOLDEM 3A [Concomitant]
     Active Substance: CARBOHYDRATES\POTASSIUM CHLORIDE\SODIUM CHLORIDE\SODIUM LACTATE
     Dosage: DOSE UNKNOWN
     Route: 041
     Dates: start: 20180718
  4. HOKUNALIN [Concomitant]
     Active Substance: TULOBUTEROL
     Indication: ASTHMA
     Route: 062
     Dates: start: 20130319
  5. SYMBICORT [Concomitant]
     Active Substance: BUDESONIDE\FORMOTEROL FUMARATE DIHYDRATE
     Indication: ASTHMA
     Route: 055
     Dates: start: 20110216
  6. CRESTOR [Concomitant]
     Active Substance: ROSUVASTATIN CALCIUM
     Indication: DYSLIPIDAEMIA
     Route: 048
     Dates: start: 20120328
  7. DECADRON [Concomitant]
     Active Substance: DEXAMETHASONE
     Indication: ASTHMA
     Route: 041
     Dates: start: 20180718, end: 20180718
  8. FASENRA [Suspect]
     Active Substance: BENRALIZUMAB
     Indication: ASTHMA
     Dosage: 30.0MG UNKNOWN
     Route: 058
     Dates: start: 20180718
  9. TSUMURA GOREISAN [Concomitant]
     Indication: OEDEMA PERIPHERAL
     Route: 048
     Dates: start: 20170208
  10. THEO?DUR [Concomitant]
     Active Substance: THEOPHYLLINE ANHYDROUS
     Indication: ASTHMA
     Route: 048
     Dates: start: 20101124
  11. KIPRES OD [Concomitant]
     Indication: ASTHMA
     Route: 048
     Dates: start: 20160511

REACTIONS (2)
  - Anaphylactic reaction [Recovering/Resolving]
  - Wheezing [Unknown]

NARRATIVE: CASE EVENT DATE: 20180718
